FAERS Safety Report 4538396-2 (Version None)
Quarter: 2004Q4

REPORT INFORMATION
  Report Type: 
  Country: None (occurrence: None)
  Receive Date: 20041223
  Receipt Date: 20041223
  Transmission Date: 20050328
  Serious: No
  Sender: FDA-Public Use
  Company Number: None

PATIENT
  Age: 59 Year
  Sex: Female
  Weight: 143.7903 kg

DRUGS (11)
  1. REMICADE [Suspect]
     Indication: RHEUMATOID ARTHRITIS
     Dosage: 430 MG IV
     Route: 042
     Dates: start: 20040514
  2. REMICADE [Suspect]
     Indication: RHEUMATOID ARTHRITIS
     Dosage: 430 MG IV
     Route: 042
     Dates: start: 20040601
  3. CELEBREX [Concomitant]
  4. METHOTREXATE [Concomitant]
  5. LOTENSIN [Concomitant]
  6. ACTOS [Concomitant]
  7. GLUCOTROL [Concomitant]
  8. PREVACID [Concomitant]
  9. LIPITOR [Concomitant]
  10. VERELAN [Concomitant]
  11. FOLIC ACID [Concomitant]

REACTIONS (5)
  - ERYTHEMA NODOSUM [None]
  - LOBAR PNEUMONIA [None]
  - OEDEMA [None]
  - OEDEMA PERIPHERAL [None]
  - RASH [None]
